FAERS Safety Report 4785969-8 (Version None)
Quarter: 2005Q3

REPORT INFORMATION
  Report Type: 
  Country: None (occurrence: None)
  Receive Date: 20050930
  Receipt Date: 20050926
  Transmission Date: 20060218
  Serious: Yes (Other)
  Sender: FDA-Public Use
  Company Number: 200512774GDS

PATIENT
  Age: 9 Year
  Sex: Female

DRUGS (3)
  1. ACETYLSALICYLIC ACID SRT [Suspect]
     Indication: JUVENILE ARTHRITIS
     Dosage: NI, UNK
  2. METHOTREXATE [Suspect]
     Indication: JUVENILE ARTHRITIS
     Dosage: NI, UNK
     Route: 065
  3. PREDNISOLONE [Suspect]
     Indication: JUVENILE ARTHRITIS
     Dosage: NI, UNK
     Route: 065

REACTIONS (1)
  - HODGKIN'S DISEASE [None]
